FAERS Safety Report 4713088-5 (Version None)
Quarter: 2005Q3

REPORT INFORMATION
  Report Type: 
  Country: None (occurrence: None)
  Receive Date: 20050712
  Receipt Date: 20050712
  Transmission Date: 20060218
  Serious: Yes (Life-Threatening, Hospitalization)
  Sender: FDA-Public Use
  Company Number: None

PATIENT
  Age: 65 Year
  Sex: Male
  Weight: 114.8 kg

DRUGS (10)
  1. BENAZEPRIL [Suspect]
     Indication: DIABETES MELLITUS
     Dosage: 5 MG, 5 MG  DAIL, ORAL
     Route: 048
     Dates: start: 20050312, end: 20050331
  2. BENAZEPRIL [Suspect]
     Indication: HYPERTENSION
     Dosage: 5 MG, 5 MG  DAIL, ORAL
     Route: 048
     Dates: start: 20050312, end: 20050331
  3. ATENOLOL [Concomitant]
  4. BENAZEPRIL HCL [Concomitant]
  5. HYDROXYZINE PAMOATE [Concomitant]
  6. GLIPIZIDE [Concomitant]
  7. METFORMIN HCL [Concomitant]
  8. SIMVASTATIN [Concomitant]
  9. OMEPRAZOLE [Concomitant]
  10. TRAMADOL HCL [Concomitant]

REACTIONS (2)
  - RASH [None]
  - SWOLLEN TONGUE [None]
